FAERS Safety Report 25231465 (Version 3)
Quarter: 2025Q3

REPORT INFORMATION
  Report Type: Report from Study
  Country: CA (occurrence: CA)
  Receive Date: 20250423
  Receipt Date: 20250704
  Transmission Date: 20251020
  Serious: Yes (Hospitalization, Other)
  Sender: TAKEDA
  Company Number: CA-TAKEDA-2025TUS038378

PATIENT
  Sex: Female

DRUGS (2)
  1. VEDOLIZUMAB [Suspect]
     Active Substance: VEDOLIZUMAB
     Indication: Crohn^s disease
     Dates: start: 20250213, end: 20250423
  2. REMICADE [Concomitant]
     Active Substance: INFLIXIMAB

REACTIONS (1)
  - Crohn^s disease [Unknown]
